FAERS Safety Report 21966092 (Version 1)
Quarter: 2023Q1

REPORT INFORMATION
  Report Type: Spontaneous
  Country: CZ (occurrence: CZ)
  Receive Date: 20230208
  Receipt Date: 20230208
  Transmission Date: 20230418
  Serious: Yes (Hospitalization, Other)
  Sender: FDA-Public Use
  Company Number: None

PATIENT
  Age: 54 Year
  Sex: Male
  Weight: 96 kg

DRUGS (5)
  1. ELIQUIS [Suspect]
     Active Substance: APIXABAN
     Indication: Deep vein thrombosis
     Dosage: 2-0-2 LAST DOSE OF 10MG IN THE MORNING 1/22/2023
     Route: 048
     Dates: start: 20230116, end: 20230122
  2. ELIQUIS [Suspect]
     Active Substance: APIXABAN
     Dosage: 1-0-1 FIRST DOSE OF 5MG IN THE EVENING 1/22/2023
     Route: 048
     Dates: start: 20230122, end: 20230124
  3. ZALDIAR [Concomitant]
     Active Substance: ACETAMINOPHEN\TRAMADOL HYDROCHLORIDE
     Indication: Procedural pain
     Dosage: AS NEEDED MAXIMUM 2 TABLETS A DAY
     Route: 048
     Dates: start: 20230116, end: 20230121
  4. MELPERONE HYDROCHLORIDE [Concomitant]
     Active Substance: MELPERONE HYDROCHLORIDE
     Indication: Insomnia
     Dosage: WHEN HE CANT SLEEP
     Route: 048
     Dates: start: 20230116, end: 20230121
  5. METAMIZOL STADA [METAMIZOLE SODIUM MONOHYDRATE] [Concomitant]
     Indication: Procedural pain
     Dosage: AS NEEDED 1 - 2 TABLETS A DAY
     Route: 048
     Dates: start: 20230116, end: 20230120

REACTIONS (3)
  - Urticarial dermatitis [Unknown]
  - Rash papular [Recovered/Resolved]
  - Lip swelling [Recovered/Resolved]

NARRATIVE: CASE EVENT DATE: 20230122
